FAERS Safety Report 9779024 (Version 1)
Quarter: 2013Q4

REPORT INFORMATION
  Report Type: Spontaneous
  Country: IT (occurrence: IT)
  Receive Date: 20131223
  Receipt Date: 20131223
  Transmission Date: 20140711
  Serious: Yes (Death)
  Sender: FDA-Public Use
  Company Number: PHHY2013IT148764

PATIENT
  Age: 37 Year
  Sex: Male

DRUGS (4)
  1. DIAMORPHINE HYDROCHLORIDE [Suspect]
     Route: 042
  2. DEXTROMETHORPHAN [Interacting]
  3. CAFFEINE [Interacting]
  4. DIAMORPHINE [Suspect]

REACTIONS (2)
  - Drug interaction [Fatal]
  - Overdose [Fatal]
